FAERS Safety Report 8590734 (Version 5)
Quarter: 2014Q1

REPORT INFORMATION
  Report Type: Report from Study
  Country: CA (occurrence: CA)
  Receive Date: 20120601
  Receipt Date: 20140129
  Transmission Date: 20141002
  Serious: Yes (Hospitalization, Other)
  Sender: FDA-Public Use
  Company Number: CA-ROCHE-1072835

PATIENT
  Age: 57 Year
  Sex: Female
  Weight: 110.2 kg

DRUGS (24)
  1. RITUXAN [Suspect]
     Indication: RHEUMATOID ARTHRITIS
     Dosage: PREVIOUS DOSE WAS RECIEVED ON 17/JAN/2013.
     Route: 042
     Dates: start: 20111114, end: 20130801
  2. DIPHENHYDRAMINE HCL [Concomitant]
     Indication: PREMEDICATION
     Route: 048
     Dates: start: 20111212, end: 20111212
  3. DIPHENHYDRAMINE HCL [Concomitant]
     Route: 048
     Dates: start: 20111114, end: 20130801
  4. ACETAMINOPHEN [Concomitant]
     Indication: PREMEDICATION
     Route: 048
     Dates: start: 20111212, end: 20111212
  5. ACETAMINOPHEN [Concomitant]
     Route: 048
     Dates: start: 20111114, end: 20130801
  6. METHYLPREDNISOLONE [Concomitant]
     Indication: PREMEDICATION
     Route: 042
     Dates: start: 20111212, end: 20111212
  7. METHYLPREDNISOLONE [Concomitant]
     Route: 042
     Dates: start: 20111114, end: 20130801
  8. PREDNISONE [Concomitant]
  9. METHOTREXATE [Concomitant]
  10. ACLASTA [Concomitant]
  11. FUROSEMIDE [Concomitant]
  12. DOMPERIDONE [Concomitant]
  13. COUMADINE [Concomitant]
  14. FOLIC ACID [Concomitant]
  15. GABAPENTIN [Concomitant]
  16. ENALAPRIL [Concomitant]
  17. ADVAIR [Concomitant]
  18. DETROL [Concomitant]
  19. FLUCONAZOLE [Concomitant]
  20. GLYBURIDE [Concomitant]
  21. SINGULAIR [Concomitant]
  22. ASAPHEN [Concomitant]
  23. DEXILANT [Concomitant]
  24. METFORMIN [Concomitant]

REACTIONS (7)
  - Pulmonary embolism [Recovered/Resolved]
  - Pneumonia [Unknown]
  - Bronchitis [Unknown]
  - Pulmonary mass [Not Recovered/Not Resolved]
  - Paranasal cyst [Recovering/Resolving]
  - Arthralgia [Not Recovered/Not Resolved]
  - Drug ineffective [Unknown]
